FAERS Safety Report 4688800-4 (Version None)
Quarter: 2005Q2

REPORT INFORMATION
  Report Type: 
  Country: None (occurrence: None)
  Receive Date: 20050613
  Receipt Date: 20050303
  Transmission Date: 20051028
  Serious: Yes (Life-Threatening, Hospitalization)
  Sender: FDA-Public Use
  Company Number: US-GLAXOSMITHKLINE-A0548205A

PATIENT
  Age: 36 Year
  Sex: Female
  Weight: 68.2 kg

DRUGS (2)
  1. WELLBUTRIN [Suspect]
     Indication: DEPRESSION
     Dosage: 300MG PER DAY
     Route: 048
     Dates: start: 20041210, end: 20050221
  2. LEXAPRO [Concomitant]

REACTIONS (7)
  - AMNESIA [None]
  - CONFUSIONAL STATE [None]
  - GRAND MAL CONVULSION [None]
  - INCORRECT DOSE ADMINISTERED [None]
  - MEDICATION ERROR [None]
  - OVERDOSE [None]
  - TEMPORAL LOBE EPILEPSY [None]
